FAERS Safety Report 8134697-X (Version None)
Quarter: 2012Q1

REPORT INFORMATION
  Report Type: 
  Country: None (occurrence: None)
  Receive Date: 20120214
  Receipt Date: 20120209
  Transmission Date: 20120608
  Serious: Yes (Hospitalization, Other)
  Sender: FDA-Public Use
  Company Number: DE-BRISTOL-MYERS SQUIBB COMPANY-16310542

PATIENT
  Age: 57 Year
  Sex: Female
  Weight: 85 kg

DRUGS (1)
  1. YERVOY [Suspect]
     Indication: MALIGNANT MELANOMA
     Dosage: 2ND CYCLE ON 23NOV11,3RD ON 14DEC11
     Dates: start: 20111102

REACTIONS (5)
  - HYPOTHYROIDISM [None]
  - HEPATIC STEATOSIS [None]
  - RASH MACULO-PAPULAR [None]
  - PRURITUS [None]
  - HYPOPHYSITIS [None]
